FAERS Safety Report 19943089 (Version 1)
Quarter: 2021Q4

REPORT INFORMATION
  Report Type: Spontaneous
  Country: US (occurrence: US)
  Receive Date: 20211006
  Receipt Date: 20211006
  Transmission Date: 20220304
  Serious: No
  Sender: FDA-Public Use
  Company Number: None

PATIENT
  Age: 61 Year
  Sex: Male

DRUGS (2)
  1. RIVAROXABAN [Suspect]
     Active Substance: RIVAROXABAN
     Indication: Atrial fibrillation
     Route: 048
     Dates: start: 20200227, end: 20210616
  2. ASPIRIN [Suspect]
     Active Substance: ASPIRIN
     Indication: Vascular device user
     Route: 048
     Dates: start: 20190930

REACTIONS (7)
  - Haemorrhage [None]
  - Anaemia [None]
  - Blood blister [None]
  - Packed red blood cell transfusion [None]
  - Duodenal ulcer [None]
  - Helicobacter infection [None]
  - Rectal haemorrhage [None]

NARRATIVE: CASE EVENT DATE: 20210616
